FAERS Safety Report 21837886 (Version 4)
Quarter: 2023Q1

REPORT INFORMATION
  Report Type: Spontaneous
  Country: US (occurrence: US)
  Receive Date: 20230109
  Receipt Date: 20230123
  Transmission Date: 20230418
  Serious: No
  Sender: FDA-Public Use
  Company Number: US-PFIZER INC-PV202200133725

PATIENT
  Age: 55 Year
  Sex: Female

DRUGS (1)
  1. IBRANCE [Suspect]
     Active Substance: PALBOCICLIB
     Dosage: 125 MG
     Dates: start: 202212

REACTIONS (7)
  - Neoplasm progression [Unknown]
  - Hot flush [Unknown]
  - Feeling cold [Unknown]
  - Feeling hot [Unknown]
  - Night sweats [Unknown]
  - Cold sweat [Unknown]
  - Product dose omission issue [Unknown]
